FAERS Safety Report 20845461 (Version 1)
Quarter: 2022Q2

REPORT INFORMATION
  Report Type: Spontaneous
  Country: DE (occurrence: DE)
  Receive Date: 20220518
  Receipt Date: 20220518
  Transmission Date: 20220721
  Serious: Yes (Other)
  Sender: FDA-Public Use
  Company Number: None

PATIENT
  Sex: Female
  Weight: 48 kg

DRUGS (2)
  1. CYTOTEC [Suspect]
     Active Substance: MISOPROSTOL
     Indication: Pre-eclampsia
     Dosage: 10:00 HALF TABLET, 14:00 WHOLE TABLET;
     Route: 048
     Dates: start: 20160802, end: 20160802
  2. CYTOTEC [Suspect]
     Active Substance: MISOPROSTOL
     Indication: Labour induction

REACTIONS (9)
  - Haemorrhage [Recovered/Resolved]
  - Amniocentesis abnormal [Recovered/Resolved]
  - Thrombosis [Recovered/Resolved]
  - Haemoglobin decreased [Recovered/Resolved]
  - Vomiting [Recovered/Resolved]
  - Cardiovascular disorder [Recovered/Resolved]
  - Labour augmentation [Recovered/Resolved]
  - Dyspnoea [Unknown]
  - Off label use [Unknown]

NARRATIVE: CASE EVENT DATE: 20160801
